FAERS Safety Report 14182768 (Version 2)
Quarter: 2017Q4

REPORT INFORMATION
  Report Type: Spontaneous
  Country: US (occurrence: US)
  Receive Date: 20171113
  Receipt Date: 20171127
  Transmission Date: 20180321
  Serious: Yes (Other)
  Sender: FDA-Public Use
  Company Number: US-LPDUSPRD-20171511

PATIENT
  Age: 35 Year
  Sex: Male

DRUGS (5)
  1. CARBOCAINE [Suspect]
     Active Substance: MEPIVACAINE HYDROCHLORIDE
     Dosage: 1 ML
     Route: 058
     Dates: start: 20170929
  2. LIDOCAINE 2% [Suspect]
     Active Substance: LIDOCAINE
     Dosage: 1 ML
     Route: 065
     Dates: start: 20170929
  3. BETAMETHASONE SODIUM PHOSPHATE AND BETAMETHASONE ACETATE INJ SUSP, USP [Suspect]
     Active Substance: BETAMETHASONE ACETATE\BETAMETHASONE SODIUM PHOSPHATE
     Dosage: 0.5 ML
     Route: 058
     Dates: start: 20170929, end: 20170929
  4. NO DRUG NAME [Concomitant]
     Dosage: UNKNOWN
     Route: 065
  5. NO DRUG NAME [Concomitant]
     Dosage: UNKNOWN
     Route: 065

REACTIONS (3)
  - Mycobacterium chelonae infection [Unknown]
  - Abscess [Unknown]
  - Cellulitis [Unknown]

NARRATIVE: CASE EVENT DATE: 20171025
